FAERS Safety Report 9677112 (Version 3)
Quarter: 2013Q4

REPORT INFORMATION
  Report Type: Spontaneous
  Country: US (occurrence: US)
  Receive Date: 20131108
  Receipt Date: 20131227
  Transmission Date: 20140711
  Serious: No
  Sender: FDA-Public Use
  Company Number: US-009507513-1311USA000060

PATIENT
  Age: 34 Year
  Sex: Male

DRUGS (3)
  1. PEGINTRON [Suspect]
     Indication: HEPATITIS C
     Dosage: REDIPEN
     Dates: start: 20131026
  2. REBETOL [Suspect]
     Indication: HEPATITIS C
     Dosage: UNK
     Route: 048
     Dates: start: 20131027
  3. TELAPREVIR [Suspect]
     Indication: HEPATITIS C
     Dosage: UNK
     Dates: start: 20131027

REACTIONS (19)
  - Gastrointestinal disorder [Unknown]
  - Irritability [Unknown]
  - Visual acuity reduced [Unknown]
  - Asthenia [Unknown]
  - Insomnia [Unknown]
  - Blood glucose increased [Unknown]
  - Vision blurred [Unknown]
  - Malaise [Unknown]
  - Pallor [Unknown]
  - Urinary tract disorder [Unknown]
  - Hyperhidrosis [Unknown]
  - Nausea [Unknown]
  - Pruritus [Unknown]
  - Headache [Unknown]
  - Rash [Unknown]
  - Anxiety [Unknown]
  - Blood cholesterol increased [Unknown]
  - Vomiting [Unknown]
  - Memory impairment [Unknown]
